FAERS Safety Report 16711450 (Version 1)
Quarter: 2019Q3

REPORT INFORMATION
  Report Type: Spontaneous
  Country: IT (occurrence: IT)
  Receive Date: 20190816
  Receipt Date: 20190816
  Transmission Date: 20191004
  Serious: Yes (Other)
  Sender: FDA-Public Use
  Company Number: IT-ASTRAZENECA-2019SF13646

PATIENT
  Age: 71 Year
  Sex: Female

DRUGS (7)
  1. DELORAZEPAM [Concomitant]
     Active Substance: DELORAZEPAM
     Dosage: 10.0GTT UNKNOWN
     Route: 048
     Dates: start: 20190328
  2. TRITTICO [Concomitant]
     Active Substance: TRAZODONE HYDROCHLORIDE
     Dosage: 75.0MG UNKNOWN
     Route: 048
     Dates: start: 20190328
  3. CARDIOASPIRIN [Concomitant]
     Active Substance: ASPIRIN
  4. SEROQUEL [Suspect]
     Active Substance: QUETIAPINE FUMARATE
     Indication: FRONTOTEMPORAL DEMENTIA
     Route: 048
     Dates: start: 20170926
  5. LOBIVON [Concomitant]
     Active Substance: NEBIVOLOL HYDROCHLORIDE
  6. ATARAX [Concomitant]
     Active Substance: HYDROXYZINE HYDROCHLORIDE
     Dosage: 1.0DF UNKNOWN
     Route: 048
     Dates: start: 20190328
  7. PURSENNID [Concomitant]

REACTIONS (3)
  - Fall [Recovering/Resolving]
  - Altered state of consciousness [Recovering/Resolving]
  - Unresponsive to stimuli [Recovering/Resolving]

NARRATIVE: CASE EVENT DATE: 20190628
